FAERS Safety Report 15631186 (Version 3)
Quarter: 2018Q4

REPORT INFORMATION
  Report Type: Spontaneous
  Country: US (occurrence: US)
  Receive Date: 20181119
  Receipt Date: 20181125
  Transmission Date: 20190205
  Serious: No
  Sender: FDA-Public Use
  Company Number: US-JNJFOC-20181103815

PATIENT
  Sex: Female
  Weight: 81.65 kg

DRUGS (1)
  1. NIZORAL A-D [Suspect]
     Active Substance: KETOCONAZOLE
     Indication: DANDRUFF
     Dosage: A DAB ON HER HAND
     Route: 061
     Dates: end: 20181030

REACTIONS (1)
  - Drug ineffective [Unknown]
